FAERS Safety Report 8559300-6 (Version None)
Quarter: 2012Q3

REPORT INFORMATION
  Report Type: 
  Country: None (occurrence: None)
  Receive Date: 20120802
  Receipt Date: 20120730
  Transmission Date: 20120928
  Serious: Yes (Hospitalization, Other)
  Sender: FDA-Public Use
  Company Number: PHEH2009US07540

PATIENT
  Sex: Female

DRUGS (24)
  1. HYDROCODONE [Concomitant]
  2. ZOMETA [Suspect]
     Dosage: 4 MG, QMO
     Route: 042
  3. ASPIRIN [Concomitant]
  4. ATENOLOL [Concomitant]
     Dosage: 25 MG, QHS
  5. PROPYLTHIOURACIL [Concomitant]
  6. CLARITIN [Concomitant]
  7. MYLANTA (MAGNESIUM HYDROXIDE/ALUMINIUM HYDROXIDE) [Concomitant]
  8. XANAX [Concomitant]
     Dosage: 0.25 MG, BID
  9. AMIODARONE HCL [Concomitant]
     Dosage: 200 MG, DAILY
  10. SENNA-MINT WAF [Concomitant]
  11. CHEMOTHERAPEUTICS [Concomitant]
  12. ZANTAC [Concomitant]
  13. CEPACOL SORE THROAT + COUGH RELIEF LOZENGES [Concomitant]
  14. EFFEXOR [Concomitant]
     Dosage: 75 MG, DAILY
  15. BUSPAR [Concomitant]
  16. LEVAQUIN [Concomitant]
  17. ATIVAN [Concomitant]
     Dosage: 2 MG, AT BED TIME
  18. CODEINE [Concomitant]
  19. PHENERGAN HCL [Concomitant]
  20. VISTARIL [Concomitant]
  21. AREDIA [Suspect]
  22. LORTAB [Concomitant]
     Dosage: UNK
  23. PACERONE [Concomitant]
  24. DILAUDID [Concomitant]

REACTIONS (56)
  - OSTEONECROSIS OF JAW [None]
  - GENERAL PHYSICAL HEALTH DETERIORATION [None]
  - PAIN [None]
  - PULMONARY VALVE INCOMPETENCE [None]
  - METASTASES TO LIVER [None]
  - METASTASES TO SPINE [None]
  - MENTAL STATUS CHANGES [None]
  - ATRIAL FIBRILLATION [None]
  - ANAEMIA OF MALIGNANT DISEASE [None]
  - FALL [None]
  - BREAST CANCER METASTATIC [None]
  - ALTERED STATE OF CONSCIOUSNESS [None]
  - ATELECTASIS [None]
  - LUNG NEOPLASM [None]
  - OEDEMA PERIPHERAL [None]
  - MUCOSAL INFLAMMATION [None]
  - LETHARGY [None]
  - MOUTH ULCERATION [None]
  - THROMBOCYTOPENIA [None]
  - PARALYSIS [None]
  - DYSPNOEA EXERTIONAL [None]
  - GAIT DISTURBANCE [None]
  - ABDOMINAL DISCOMFORT [None]
  - ANXIETY [None]
  - METASTASES TO BONE [None]
  - SCAR [None]
  - WEIGHT INCREASED [None]
  - AORTIC VALVE INCOMPETENCE [None]
  - TRICUSPID VALVE INCOMPETENCE [None]
  - PRESYNCOPE [None]
  - DYSURIA [None]
  - HYPERTENSION [None]
  - BASEDOW'S DISEASE [None]
  - PALPITATIONS [None]
  - HYPOKALAEMIA [None]
  - IMPAIRED GASTRIC EMPTYING [None]
  - DIZZINESS [None]
  - DEPRESSION [None]
  - PHLEBITIS [None]
  - RESPIRATORY DISTRESS [None]
  - CELLULITIS [None]
  - MITRAL VALVE INCOMPETENCE [None]
  - BACK PAIN [None]
  - RASH ERYTHEMATOUS [None]
  - VENOUS THROMBOSIS [None]
  - BONE PAIN [None]
  - ANHEDONIA [None]
  - HYPOTHYROIDISM [None]
  - VENTRICULAR TACHYCARDIA [None]
  - MITRAL VALVE PROLAPSE [None]
  - ABDOMINAL PAIN [None]
  - RHINITIS ALLERGIC [None]
  - HILAR LYMPHADENOPATHY [None]
  - METASTASES TO LUNG [None]
  - IRRITABLE BOWEL SYNDROME [None]
  - OROPHARYNGEAL PAIN [None]
